FAERS Safety Report 9285908 (Version 2)
Quarter: 2014Q3

REPORT INFORMATION
  Report Type: Spontaneous
  Country: US (occurrence: US)
  Receive Date: 20130513
  Receipt Date: 20140801
  Transmission Date: 20150326
  Serious: Yes (Hospitalization, Other)
  Sender: FDA-Public Use
  Company Number: US-BAYER-2013-058662

PATIENT
  Age: 39 Year
  Sex: Female
  Weight: 81.63 kg

DRUGS (5)
  1. DOXYCYCLINE HYCLATE. [Concomitant]
     Active Substance: DOXYCYCLINE HYCLATE
     Dosage: 100 MG, BID
     Route: 048
     Dates: start: 20070712
  2. CIPROFLOXACIN. [Concomitant]
     Active Substance: CIPROFLOXACIN
     Dosage: 250 MG, BID
     Route: 048
     Dates: start: 20070423
  3. YASMIN [Suspect]
     Active Substance: DROSPIRENONE\ETHINYL ESTRADIOL
     Dosage: UNK
     Dates: start: 2005, end: 2006
  4. HYDROCODONE/ACETAMINOPHEN [Concomitant]
     Active Substance: ACETAMINOPHEN\HYDROCODONE
     Indication: PAIN
     Dosage: 5MG/500MG TABLETS 1 OR 2 EVERY 4 TO 6 HOURS (AS NEEDED), 7.5 MG/325 MG TABLETS 1 OR 2 EVERY 6 HOURS
     Route: 048
     Dates: start: 20070417, end: 20070421
  5. FERROUS GLUCONATE [Concomitant]
     Active Substance: FERROUS GLUCONATE
     Dosage: 325 MG, UNK
     Route: 048
     Dates: start: 20070419

REACTIONS (10)
  - Headache [None]
  - Abdominal pain [None]
  - General physical health deterioration [None]
  - Anxiety [None]
  - Dizziness [None]
  - Thrombosis [None]
  - Deep vein thrombosis [None]
  - Pain [None]
  - Injury [None]
  - Emotional distress [None]

NARRATIVE: CASE EVENT DATE: 200707
